FAERS Safety Report 8202131-7 (Version None)
Quarter: 2012Q1

REPORT INFORMATION
  Report Type: 
  Country: None (occurrence: None)
  Receive Date: 20120312
  Receipt Date: 20120305
  Transmission Date: 20120608
  Serious: Yes (Hospitalization, Other)
  Sender: FDA-Public Use
  Company Number: US-AMGEN-USASP2012014648

PATIENT
  Age: 72 Year
  Sex: Female

DRUGS (2)
  1. ENBREL [Suspect]
     Indication: RHEUMATOID ARTHRITIS
     Dosage: 50 MG, QWK
     Dates: start: 20010620
  2. ENBREL [Suspect]
     Indication: OSTEOARTHRITIS

REACTIONS (17)
  - CARDIAC DISORDER [None]
  - MYOCARDIAL INFARCTION [None]
  - CHEST DISCOMFORT [None]
  - FLUID RETENTION [None]
  - DYSPHONIA [None]
  - MUSCULOSKELETAL DISCOMFORT [None]
  - IN-STENT CORONARY ARTERY RESTENOSIS [None]
  - PHARYNGOESOPHAGEAL DIVERTICULUM [None]
  - ARTHRODESIS [None]
  - DYSPHAGIA [None]
  - HERNIA [None]
  - ARTHRITIS [None]
  - BALANCE DISORDER [None]
  - JOINT SWELLING [None]
  - OSTEOARTHRITIS [None]
  - GAIT DISTURBANCE [None]
  - PRURITUS [None]
